FAERS Safety Report 16791297 (Version 2)
Quarter: 2019Q4

REPORT INFORMATION
  Report Type: Report from Study
  Country: FR (occurrence: FR)
  Receive Date: 20190910
  Receipt Date: 20191209
  Transmission Date: 20200122
  Serious: Yes (Hospitalization, Other)
  Sender: FDA-Public Use
  Company Number: FR-TAKEDA-2019TUS051337

PATIENT
  Sex: Female
  Weight: 46 kg

DRUGS (1)
  1. IXAZOMIB [Suspect]
     Active Substance: IXAZOMIB
     Indication: PLASMA CELL MYELOMA
     Dosage: UNK
     Route: 065
     Dates: start: 20180816, end: 20180918

REACTIONS (6)
  - Vomiting [Recovered/Resolved]
  - Diabetes mellitus inadequate control [Recovering/Resolving]
  - General physical health deterioration [Recovering/Resolving]
  - Nausea [Recovered/Resolved]
  - Osteoradionecrosis [Recovered/Resolved]
  - Rash [Recovered/Resolved]

NARRATIVE: CASE EVENT DATE: 20180817
